FAERS Safety Report 5452662-8 (Version None)
Quarter: 2007Q3

REPORT INFORMATION
  Report Type: 
  Country: None (occurrence: None)
  Receive Date: 20070914
  Receipt Date: 20070906
  Transmission Date: 20080115
  Serious: Yes (Hospitalization, Other)
  Sender: FDA-Public Use
  Company Number: KR-ABBOTT-07P-090-0416354-00

PATIENT
  Age: 9 Year
  Sex: Male

DRUGS (10)
  1. VALPROIC ACID [Suspect]
     Indication: CONVULSION
     Dosage: NOT REPORTED
  2. PHENYTOIN [Suspect]
     Indication: CONVULSION
     Dosage: NOT REPORTED
  3. TOPIRAMATE [Suspect]
     Indication: CONVULSION
     Dosage: NOT REPORTED
  4. CLONAZEPAM [Suspect]
     Indication: CONVULSION
     Dosage: NOT REPORTED
  5. PIPERACILLIN [Suspect]
     Indication: ANTIBIOTIC PROPHYLAXIS
     Dosage: NOT REPORTED
  6. ISEPAMICIN [Suspect]
     Indication: ANTIBIOTIC PROPHYLAXIS
     Dosage: NOT REPORTED
  7. VINCRISTINE [Suspect]
     Indication: CHEMOTHERAPY
     Dosage: NOT REPORTED
     Dates: start: 20050401
  8. ETOPOSIDE [Suspect]
     Indication: CHEMOTHERAPY
     Dosage: NOT REPORTED
     Dates: start: 20050401
  9. CISPLATIN [Suspect]
     Indication: CHEMOTHERAPY
     Dosage: NOT REPORTED
     Dates: start: 20050401
  10. CARBOPLATIN [Suspect]
     Indication: CHEMOTHERAPY
     Dosage: NOT REPORTED
     Dates: start: 20050401

REACTIONS (5)
  - COLONIC PSEUDO-OBSTRUCTION [None]
  - CONVULSION [None]
  - ILEUS [None]
  - ORAL INTAKE REDUCED [None]
  - PANCYTOPENIA [None]
